FAERS Safety Report 17795740 (Version 1)
Quarter: 2020Q2

REPORT INFORMATION
  Report Type: Spontaneous
  Country: ES (occurrence: ES)
  Receive Date: 20200516
  Receipt Date: 20200516
  Transmission Date: 20200714
  Serious: Yes (Hospitalization)
  Sender: FDA-Public Use
  Company Number: NVSC2020ES123105

PATIENT
  Age: 26 Year
  Sex: Female

DRUGS (5)
  1. MICOFENOLATO DE MOFETILO [Interacting]
     Active Substance: MYCOPHENOLATE MOFETIL
     Indication: SYSTEMIC LUPUS ERYTHEMATOSUS
     Dosage: UNK
     Route: 048
     Dates: start: 2014
  2. RITUXIMAB. [Interacting]
     Active Substance: RITUXIMAB
     Indication: SYSTEMIC LUPUS ERYTHEMATOSUS
     Dosage: 1 G
     Route: 048
     Dates: start: 20171127
  3. PREDNISONA [Interacting]
     Active Substance: PREDNISONE
     Indication: SYSTEMIC LUPUS ERYTHEMATOSUS
     Dosage: 2.5 MG, QD
     Route: 048
     Dates: start: 2010
  4. TACROLIMUS. [Suspect]
     Active Substance: TACROLIMUS
     Indication: SYSTEMIC LUPUS ERYTHEMATOSUS
     Dosage: 1 MG, QD
     Route: 048
     Dates: start: 2015
  5. HIDROXICLOROQUINA SULFATO [Concomitant]
     Active Substance: HYDROXYCHLOROQUINE SULFATE
     Indication: SYSTEMIC LUPUS ERYTHEMATOSUS
     Dosage: 200 MG, QD
     Route: 048
     Dates: start: 2016

REACTIONS (2)
  - Pneumonia pneumococcal [Recovered/Resolved]
  - Influenza [Recovered/Resolved]

NARRATIVE: CASE EVENT DATE: 20190206
